FAERS Safety Report 8605477-3 (Version None)
Quarter: 2012Q3

REPORT INFORMATION
  Report Type: 
  Country: None (occurrence: None)
  Receive Date: 20120820
  Receipt Date: 20120807
  Transmission Date: 20120928
  Serious: Yes (Death)
  Sender: FDA-Public Use
  Company Number: JP-SANOFI-AVENTIS-2012SA057278

PATIENT
  Age: 83 Year
  Sex: Male

DRUGS (1)
  1. TAXOTERE [Suspect]
     Dosage: 6 DOSES
     Route: 042

REACTIONS (3)
  - NAIL DISORDER [None]
  - DEATH [None]
  - ALOPECIA [None]
